FAERS Safety Report 17174487 (Version 1)
Quarter: 2019Q4

REPORT INFORMATION
  Report Type: Spontaneous
  Country: DE (occurrence: DE)
  Receive Date: 20191219
  Receipt Date: 20191219
  Transmission Date: 20200122
  Serious: Yes (Other)
  Sender: FDA-Public Use
  Company Number: DE-TEVA-2019-DE-1153435

PATIENT
  Age: 68 Year
  Sex: Male
  Weight: 100 kg

DRUGS (5)
  1. ATORVASTATIN ABZ 20 MG FILMTABLETTEN [Suspect]
     Active Substance: ATORVASTATIN
     Indication: MYOCARDIAL INFARCTION
     Dosage: 20MG PER DAY
     Route: 048
     Dates: start: 20190801, end: 20190901
  2. LOSARTAN AXIROMED 100 MG FILMTABLETTEN [Concomitant]
     Indication: MYOCARDIAL INFARCTION
     Dosage: 100MG
     Route: 048
  3. HCT-1A PHARMA 25 MG TABLETTEN [Concomitant]
     Indication: MYOCARDIAL INFARCTION
     Dosage: 25MG
     Route: 048
  4. ADVAGRAF 3 MG HARTKAPSELN RETARDIERT [Concomitant]
     Indication: HYPOTHYROIDISM
     Dosage: 125MICROGRAM
     Route: 048
  5. METOPROLOLSUCCINAT-1A PHAR.47,5 RETARDTABLETTEN [Concomitant]
     Indication: MYOCARDIAL INFARCTION
     Route: 048

REACTIONS (4)
  - Product substitution issue [Not Recovered/Not Resolved]
  - Hemiparesis [Not Recovered/Not Resolved]
  - Pruritus [Not Recovered/Not Resolved]
  - Paraesthesia [Not Recovered/Not Resolved]

NARRATIVE: CASE EVENT DATE: 20190801
